FAERS Safety Report 9985083 (Version 2)
Quarter: 2014Q2

REPORT INFORMATION
  Report Type: Report from Study
  Country: US (occurrence: US)
  Receive Date: 20140307
  Receipt Date: 20140411
  Transmission Date: 20141212
  Serious: Yes (Hospitalization)
  Sender: FDA-Public Use
  Company Number: US-ACTELION-A-US2014-95551

PATIENT
  Age: 74 Year
  Sex: Male

DRUGS (18)
  1. VELETRI [Suspect]
     Indication: PULMONARY ARTERIAL HYPERTENSION
     Dosage: 56 NG/KG, PER MIN
     Route: 042
     Dates: start: 20130311
  2. OPSUMIT [Suspect]
     Indication: PULMONARY ARTERIAL HYPERTENSION
     Dosage: 10 MG, QD
     Route: 048
     Dates: start: 20131213
  3. ADCIRCA [Concomitant]
     Dosage: 40 MG, UNK
  4. ALBUTEROL [Concomitant]
     Dosage: 1 PUFF THREE TIMES DAILY
  5. AMIODARONE [Concomitant]
     Dosage: 100 MG, UNK
  6. ASPIRIN [Concomitant]
     Dosage: 81 MG, UNK
  7. VITAMIN B12 [Concomitant]
     Dosage: 6000 MG, OD
  8. DIGOXIN [Concomitant]
     Dosage: 0.125 MG, UNK
  9. FLONASE [Concomitant]
     Dosage: 1 SPRAY, UNK
     Route: 045
  10. LASIX [Concomitant]
     Dosage: 40 MG, UNK
  11. NEURONTIN [Concomitant]
     Dosage: 100 MG, UNK
  12. SYNTHROID [Concomitant]
     Dosage: 75 UNK, UNK
  13. MAGNESIUM OXIDE [Concomitant]
  14. MULTIVITAMIN [Concomitant]
  15. PRILOSEC [Concomitant]
     Dosage: 40 MG, OD
  16. SIMVASTATIN [Concomitant]
     Dosage: 20 MG, UNK
  17. ALDACTONE [Concomitant]
     Dosage: 25 MG, UNK
  18. TADALAFIL [Concomitant]

REACTIONS (3)
  - Device occlusion [Recovered/Resolved]
  - Device alarm issue [Recovered/Resolved]
  - Anxiety [Unknown]
